APPROVED DRUG PRODUCT: PALSONIFY
Active Ingredient: PALTUSOTINE HYDROCHLORIDE
Strength: EQ 30MG BASE
Dosage Form/Route: TABLET;ORAL
Application: N219070 | Product #002
Applicant: CRINETICS PHARMACEUTICALS INC
Approved: Sep 25, 2025 | RLD: Yes | RS: Yes | Type: RX

PATENTS:
Patent 12208092 | Expires: Mar 25, 2044
Patent 11957674 | Expires: Sep 7, 2041
Patent 11414397 | Expires: Jul 12, 2037
Patent 11266641 | Expires: Sep 7, 2041
Patent 10875839 | Expires: Jul 12, 2037
Patent 10597377 | Expires: Jul 12, 2037
Patent 10351547 | Expires: Jul 12, 2037
Patent 9896432 | Expires: Jul 12, 2037
Patent 10464918 | Expires: Jan 16, 2039

EXCLUSIVITY:
Code: NCE | Date: Sep 25, 2030